FAERS Safety Report 12467384 (Version 1)
Quarter: 2016Q2

REPORT INFORMATION
  Report Type: Spontaneous
  Country: US (occurrence: None)
  Receive Date: 20160614
  Receipt Date: 20160614
  Transmission Date: 20160815
  Serious: No
  Sender: FDA-Public Use
  Company Number: None

PATIENT
  Age: 73 Year
  Sex: Male

DRUGS (14)
  1. METAMUCIL [Concomitant]
     Active Substance: PLANTAGO SEED
  2. CALTRATE [Concomitant]
     Active Substance: CALCIUM CARBONATE
  3. ESBRIET [Suspect]
     Active Substance: PIRFENIDONE
     Indication: UPPER RESPIRATORY TRACT INFECTION
     Route: 048
     Dates: start: 20150807
  4. OMEGA 3 [Concomitant]
     Active Substance: OMEGA-3 FATTY ACIDS
  5. VENTOLIN [Concomitant]
     Active Substance: ALBUTEROL SULFATE
  6. VITAMIN B12 [Concomitant]
     Active Substance: CYANOCOBALAMIN
  7. OMEPRAZOLE. [Concomitant]
     Active Substance: OMEPRAZOLE
  8. GARLIC. [Concomitant]
     Active Substance: GARLIC
  9. MULTIVITAMIN [Concomitant]
     Active Substance: VITAMINS
  10. TURMERIC [Concomitant]
     Active Substance: TURMERIC
  11. VITAMIN D3 [Concomitant]
     Active Substance: CHOLECALCIFEROL
  12. COQ10 [Concomitant]
     Active Substance: UBIDECARENONE
  13. RED YEAST [Concomitant]
     Active Substance: YEAST
  14. ASPIRIN. [Concomitant]
     Active Substance: ASPIRIN

REACTIONS (2)
  - Dysphagia [None]
  - Gastric operation [None]

NARRATIVE: CASE EVENT DATE: 2016
